FAERS Safety Report 17012092 (Version 3)
Quarter: 2020Q2

REPORT INFORMATION
  Report Type: Not Available
  Country: CA (occurrence: CA)
  Receive Date: 20191108
  Receipt Date: 20200602
  Transmission Date: 20200713
  Serious: Yes (Life-Threatening, Hospitalization, Other)
  Sender: FDA-Public Use
  Company Number: CA-CELGENEUS-CAN-20191100545

PATIENT
  Age: 60 Year
  Sex: Male
  Weight: 50 kg

DRUGS (87)
  1. ACETYLSALICYLIC ACID [Suspect]
     Active Substance: ASPIRIN
     Dosage: 600 MILLIGRAM
     Route: 065
  2. CYANOCOBALAMIN. [Suspect]
     Active Substance: CYANOCOBALAMIN
     Indication: PRODUCT USED FOR UNKNOWN INDICATION
     Dosage: 1000 MILLIGRAM
     Route: 048
  3. DEXAMETHASONE. [Suspect]
     Active Substance: DEXAMETHASONE
     Dosage: 8 MILLIGRAM
     Route: 048
  4. ELTROXIN [Suspect]
     Active Substance: LEVOTHYROXINE
     Dosage: 112 MICROGRAM
     Route: 048
  5. EPOETIN ALFA [Suspect]
     Active Substance: ERYTHROPOIETIN
     Indication: PRODUCT USED FOR UNKNOWN INDICATION
     Route: 042
  6. FLUDROCORTISONE [Suspect]
     Active Substance: FLUDROCORTISONE
     Indication: PRODUCT USED FOR UNKNOWN INDICATION
     Dosage: .1 MILLIGRAM
     Route: 065
  7. LEVOTHYROXINE. [Suspect]
     Active Substance: LEVOTHYROXINE
     Dosage: 112 MICROGRAM
     Route: 065
  8. PLANTAGO AFRA [Suspect]
     Active Substance: HERBALS
     Route: 065
  9. SEA WATER [Suspect]
     Active Substance: SEA WATER
     Dosage: 1000 IU (INTERNATIONAL UNIT)
     Route: 065
  10. SEA WATER [Suspect]
     Active Substance: SEA WATER
     Route: 065
  11. LOPERAMIDE HYDROCHLORIDE. [Suspect]
     Active Substance: LOPERAMIDE HYDROCHLORIDE
     Indication: DIARRHOEA
     Dosage: 1 DOSAGE FORMS
     Route: 048
  12. REVLIMID [Suspect]
     Active Substance: LENALIDOMIDE
     Indication: PLASMA CELL MYELOMA
     Dosage: 10 MILLIGRAM
     Route: 048
  13. ASCORBIC ACID. [Suspect]
     Active Substance: ASCORBIC ACID
     Dosage: 81 MILLIGRAM
     Route: 065
  14. CALCIUM ASCORBATE W/SODIUM ASCORBATE/ZINC CITRATE [Suspect]
     Active Substance: CALCIUM ASCORBATE\SODIUM ASCORBATE\ZINC CITRATE
     Indication: PRODUCT USED FOR UNKNOWN INDICATION
     Dosage: 600 MILLIGRAM
     Route: 065
  15. CALCIUM CARBONATE. [Suspect]
     Active Substance: CALCIUM CARBONATE
     Indication: GASTROINTESTINAL DISORDER
     Route: 065
  16. CLOTRIMAZOLE W/HYDROCORTISONE [Suspect]
     Active Substance: CLOTRIMAZOLE\HYDROCORTISONE
     Route: 065
  17. COLESEVELAM HYDROCHLORIDE. [Suspect]
     Active Substance: COLESEVELAM HYDROCHLORIDE
     Indication: PRODUCT USED FOR UNKNOWN INDICATION
     Dosage: 625 MILLIGRAM
     Route: 065
  18. CYANOCOBALAMIN. [Suspect]
     Active Substance: CYANOCOBALAMIN
     Route: 048
  19. CYANOCOBALAMIN. [Suspect]
     Active Substance: CYANOCOBALAMIN
     Dosage: 1000 MICROGRAM
     Route: 048
  20. DEXAMETHASONE. [Suspect]
     Active Substance: DEXAMETHASONE
     Dosage: 2 DOSAGE FORMS
     Route: 065
  21. HYDROCORTISONE ACETATE. [Suspect]
     Active Substance: HYDROCORTISONE ACETATE
     Dosage: 2 DOSAGE FORMS
     Route: 065
  22. LEVOTHYROXINE. [Suspect]
     Active Substance: LEVOTHYROXINE
     Indication: PRODUCT USED FOR UNKNOWN INDICATION
     Dosage: 112 MICROGRAM
     Route: 048
  23. PLANTAGO AFRA [Suspect]
     Active Substance: HERBALS
     Dosage: 1 DOSAGE FORMS
     Route: 065
  24. CAFEINE [Suspect]
     Active Substance: CAFFEINE
     Indication: PRODUCT USED FOR UNKNOWN INDICATION
     Dosage: 81 MILLIGRAM
     Route: 065
  25. CALCIUM [Suspect]
     Active Substance: CALCIUM
     Indication: PRODUCT USED FOR UNKNOWN INDICATION
     Dosage: 600 MILLIGRAM
     Route: 065
  26. METHYLEPHEDRINE HYDROCHLORIDE [Suspect]
     Active Substance: METHYLEPHEDRINE HYDROCHLORIDE
     Indication: PRODUCT USED FOR UNKNOWN INDICATION
     Dosage: 81 MILLIGRAM
     Route: 065
  27. PLANTAGO PSYLLIUM [Suspect]
     Active Substance: PLANTAGO INDICA WHOLE
     Dosage: 1 DOSAGE FORMS
     Route: 065
  28. ACETYLSALICYLIC ACID [Suspect]
     Active Substance: ASPIRIN
     Indication: PRODUCT USED FOR UNKNOWN INDICATION
     Dosage: 81 MILLIGRAM
     Route: 065
  29. ACETYLSALICYLIC ACID [Suspect]
     Active Substance: ASPIRIN
     Route: 065
  30. CALCIUM CARBONATE W/MAGNESIUM CARBONATE/MAGNESIUM TRISILICATE [Suspect]
     Active Substance: CALCIUM CARBONATE\MAGNESIUM CARBONATE\MAGNESIUM TRISILICATE
     Indication: GASTROINTESTINAL DISORDER
     Route: 065
  31. COLESEVELAM HYDROCHLORIDE. [Suspect]
     Active Substance: COLESEVELAM HYDROCHLORIDE
     Dosage: 625 MILLIGRAM
     Route: 048
  32. DEXAMETHASONE. [Suspect]
     Active Substance: DEXAMETHASONE
     Dosage: 8 MILLIGRAM
     Route: 048
  33. LOPERAMIDE HYDROCHLORIDE W/SIMETHICONE [Suspect]
     Active Substance: DIMETHICONE\LOPERAMIDE HYDROCHLORIDE
     Indication: DIARRHOEA
     Dosage: 1 DOSAGE FORMS
     Route: 048
  34. PANTOPRAZOLE [Suspect]
     Active Substance: PANTOPRAZOLE
     Indication: PRODUCT USED FOR UNKNOWN INDICATION
     Dosage: 40 MILLIGRAM
     Route: 048
  35. PLANTAGO AFRA [Suspect]
     Active Substance: HERBALS
     Indication: PRODUCT USED FOR UNKNOWN INDICATION
     Route: 065
  36. PLANTAGO OVATA [Suspect]
     Active Substance: HERBALS\PLANTAGO OVATA LEAF
     Indication: PRODUCT USED FOR UNKNOWN INDICATION
     Dosage: 1 DOSAGE FORMS
     Route: 048
  37. SEA WATER [Suspect]
     Active Substance: SEA WATER
     Dosage: 1000 MICROGRAM
     Route: 065
  38. SIMETHICONE (DIMETHICONE) [Suspect]
     Active Substance: DIMETHICONE
     Route: 065
  39. VITAMIN D3 [Suspect]
     Active Substance: CHOLECALCIFEROL
     Indication: PRODUCT USED FOR UNKNOWN INDICATION
     Dosage: 1000 IU (INTERNATIONAL UNIT)
     Route: 065
  40. VITAMIN D3 [Suspect]
     Active Substance: CHOLECALCIFEROL
     Dosage: 1000 IU (INTERNATIONAL UNIT)
     Route: 065
  41. VITAMIN D3 [Suspect]
     Active Substance: CHOLECALCIFEROL
     Dosage: 1000 IU (INTERNATIONAL UNIT)
     Route: 048
  42. METHYLEPHEDRINE HYDROCHLORIDE [Suspect]
     Active Substance: METHYLEPHEDRINE HYDROCHLORIDE
     Dosage: 5 MILLIGRAM
     Route: 065
  43. RIBOFLAVIN [Suspect]
     Active Substance: RIBOFLAVIN
     Indication: PRODUCT USED FOR UNKNOWN INDICATION
     Dosage: 81 MILLIGRAM
     Route: 065
  44. RIBOFLAVIN [Suspect]
     Active Substance: RIBOFLAVIN
     Dosage: 5 MILLIGRAM
     Route: 065
  45. CALCIUM ASCORBATE [Suspect]
     Active Substance: CALCIUM ASCORBATE
     Indication: PRODUCT USED FOR UNKNOWN INDICATION
     Dosage: 600 MILLIGRAM
     Route: 065
  46. CALCIUM ASCORBATE W/SODIUM ASCORBATE/ZINC CITRATE [Suspect]
     Active Substance: CALCIUM ASCORBATE\SODIUM ASCORBATE\ZINC CITRATE
     Dosage: 600 MILLIGRAM
     Route: 065
  47. EPOETIN ALFA [Suspect]
     Active Substance: ERYTHROPOIETIN
     Route: 065
  48. FLUORINE W/XYLITOL [Suspect]
     Active Substance: FLUORINE\XYLITOL
     Indication: PRODUCT USED FOR UNKNOWN INDICATION
     Route: 048
  49. FLUORINE W/XYLITOL [Suspect]
     Active Substance: FLUORINE\XYLITOL
     Route: 048
  50. VITAMIN D3 [Suspect]
     Active Substance: CHOLECALCIFEROL
     Dosage: 1000 MILLIGRAM
     Route: 048
  51. ACETYLSALICYLIC ACID [Suspect]
     Active Substance: ASPIRIN
     Dosage: 81 MILLIGRAM
     Route: 065
  52. ASCORBIC ACID. [Suspect]
     Active Substance: ASCORBIC ACID
     Indication: PRODUCT USED FOR UNKNOWN INDICATION
     Dosage: 600 MILLIGRAM
     Route: 065
  53. FLUORINE W/XYLITOL [Suspect]
     Active Substance: FLUORINE\XYLITOL
     Dosage: 2 DOSAGE FORMS
     Route: 048
  54. GLYCERINE [Suspect]
     Active Substance: GLYCERIN
     Indication: PRODUCT USED FOR UNKNOWN INDICATION
     Route: 048
  55. MIDODRINE HYDROCHLORIDE. [Suspect]
     Active Substance: MIDODRINE HYDROCHLORIDE
     Dosage: 5 MILLIGRAM
     Route: 065
  56. SEA WATER [Suspect]
     Active Substance: SEA WATER
     Indication: PRODUCT USED FOR UNKNOWN INDICATION
     Route: 047
  57. SEA WATER [Suspect]
     Active Substance: SEA WATER
     Route: 047
  58. SEA WATER [Suspect]
     Active Substance: SEA WATER
     Dosage: 3 DOSAGE FORMS
     Route: 065
  59. SODIUM CHLORIDE. [Suspect]
     Active Substance: SODIUM CHLORIDE
     Dosage: 5 MILLIGRAM
     Route: 065
  60. ASCORBIC ACID. [Suspect]
     Active Substance: ASCORBIC ACID
     Dosage: 600 MILLIGRAM
     Route: 065
  61. ASCORBIC ACID. [Suspect]
     Active Substance: ASCORBIC ACID
     Dosage: 600 MILLIGRAM
     Route: 065
  62. CALCIUM ASCORBATE [Suspect]
     Active Substance: CALCIUM ASCORBATE
     Dosage: 600 MILLIGRAM
     Route: 065
  63. DEXAMETHASONE. [Suspect]
     Active Substance: DEXAMETHASONE
     Indication: PRODUCT USED FOR UNKNOWN INDICATION
     Dosage: 2 MILLIGRAM
     Route: 065
  64. DEXAMETHASONE. [Suspect]
     Active Substance: DEXAMETHASONE
     Dosage: 4 MILLIGRAM
     Route: 048
  65. SEA WATER [Suspect]
     Active Substance: SEA WATER
     Route: 065
  66. PLANTAGO PSYLLIUM [Suspect]
     Active Substance: PLANTAGO INDICA WHOLE
     Indication: PRODUCT USED FOR UNKNOWN INDICATION
     Route: 065
  67. REVLIMID [Suspect]
     Active Substance: LENALIDOMIDE
     Route: 048
  68. ACETYLSALICYLIC ACID [Suspect]
     Active Substance: ASPIRIN
     Dosage: 600 MILLIGRAM
     Route: 065
  69. DEXAMETHASONE. [Suspect]
     Active Substance: DEXAMETHASONE
     Dosage: 2 MILLIGRAM
     Route: 048
  70. FLUDROCORTISONE [Suspect]
     Active Substance: FLUDROCORTISONE
     Dosage: 1 MILLIGRAM
     Route: 065
  71. HYALURONATE SODIUM [Suspect]
     Active Substance: HYALURONATE SODIUM
     Indication: PRODUCT USED FOR UNKNOWN INDICATION
     Route: 065
  72. LOPERAMIDE HYDROCHLORIDE W/SIMETHICONE [Suspect]
     Active Substance: DIMETHICONE\LOPERAMIDE HYDROCHLORIDE
     Route: 065
  73. MIDODRINE HYDROCHLORIDE. [Suspect]
     Active Substance: MIDODRINE HYDROCHLORIDE
     Indication: PRODUCT USED FOR UNKNOWN INDICATION
     Dosage: 5 MILLIGRAM
     Route: 065
  74. SIMETHICONE (DIMETHICONE) [Suspect]
     Active Substance: DIMETHICONE
     Indication: DIARRHOEA
     Dosage: 360 MILLIGRAM
     Route: 065
  75. SIMETHICONE (DIMETHICONE) [Suspect]
     Active Substance: DIMETHICONE
     Dosage: 120 MILLIGRAM
     Route: 065
  76. CHLORPHENIRAMINE MALEATE. [Suspect]
     Active Substance: CHLORPHENIRAMINE MALEATE
     Indication: PRODUCT USED FOR UNKNOWN INDICATION
     Dosage: 81 MILLIGRAM
     Route: 065
  77. ACETYLSALICYLIC ACID [Suspect]
     Active Substance: ASPIRIN
     Dosage: 81 MILLIGRAM
     Route: 065
  78. CLOTRIMAZOLE W/HYDROCORTISONE [Suspect]
     Active Substance: CLOTRIMAZOLE\HYDROCORTISONE
     Indication: SCROTAL SWELLING
     Route: 065
  79. COLESEVELAM HYDROCHLORIDE. [Suspect]
     Active Substance: COLESEVELAM HYDROCHLORIDE
     Dosage: 625 MILLIGRAM
     Route: 065
  80. DEXAMETHASONE. [Suspect]
     Active Substance: DEXAMETHASONE
     Dosage: 4 MILLIGRAM
     Route: 048
  81. ELTROXIN [Suspect]
     Active Substance: LEVOTHYROXINE
     Indication: PRODUCT USED FOR UNKNOWN INDICATION
     Route: 048
  82. EPOETIN ALFA [Suspect]
     Active Substance: ERYTHROPOIETIN
     Route: 042
  83. FLUORINE W/XYLITOL [Suspect]
     Active Substance: FLUORINE\XYLITOL
     Route: 048
  84. HYDROCORTISONE ACETATE. [Suspect]
     Active Substance: HYDROCORTISONE ACETATE
     Indication: SCROTAL SWELLING
     Route: 065
  85. SEA WATER [Suspect]
     Active Substance: SEA WATER
     Route: 047
  86. SODIUM CHLORIDE. [Suspect]
     Active Substance: SODIUM CHLORIDE
     Indication: PRODUCT USED FOR UNKNOWN INDICATION
     Route: 065
  87. ZINC. [Suspect]
     Active Substance: ZINC
     Indication: PRODUCT USED FOR UNKNOWN INDICATION
     Dosage: 600 MILLIGRAM
     Route: 065

REACTIONS (4)
  - Cerebrovascular accident [Not Recovered/Not Resolved]
  - Confusional state [Not Recovered/Not Resolved]
  - Disorientation [Not Recovered/Not Resolved]
  - Speech disorder [Not Recovered/Not Resolved]
